FAERS Safety Report 21210248 (Version 1)
Quarter: 2022Q3

REPORT INFORMATION
  Report Type: Report from Study
  Country: IN (occurrence: IN)
  Receive Date: 20220814
  Receipt Date: 20220814
  Transmission Date: 20221026
  Serious: Yes (Death)
  Sender: FDA-Public Use
  Company Number: IN-NOVARTISPH-NVSC2022IN183191

PATIENT
  Age: 62 Year
  Sex: Male

DRUGS (1)
  1. CERITINIB [Suspect]
     Active Substance: CERITINIB
     Indication: Non-small cell lung cancer
     Dosage: 450 MG, QD
     Route: 065
     Dates: start: 20210922

REACTIONS (1)
  - Death [Fatal]

NARRATIVE: CASE EVENT DATE: 20220709
